FAERS Safety Report 8224846-7 (Version None)
Quarter: 2012Q1

REPORT INFORMATION
  Report Type: 
  Country: None (occurrence: None)
  Receive Date: 20120321
  Receipt Date: 20120313
  Transmission Date: 20120608
  Serious: Yes (Hospitalization)
  Sender: FDA-Public Use
  Company Number: CH-ROCHE-1031230

PATIENT
  Age: 69 Year
  Sex: Male

DRUGS (10)
  1. PANTOZOL (SWITZERLAND) [Concomitant]
     Route: 048
     Dates: start: 20111101
  2. ALLOPURINOL [Concomitant]
  3. AVASTIN [Suspect]
     Indication: LUNG ADENOCARCINOMA METASTATIC
     Dosage: LATEST DOSE: 07-FEB/2012. THERAPY DELAYED.
     Route: 042
     Dates: start: 20111101
  4. ACID FOLIC [Concomitant]
  5. CISPLATIN [Suspect]
     Indication: LUNG ADENOCARCINOMA METASTATIC
     Dosage: LATEST DOSE: 10/JAN/2012
     Route: 042
     Dates: start: 20111101
  6. PEMETREXED [Suspect]
     Indication: LUNG ADENOCARCINOMA METASTATIC
     Dosage: LATEST DOSE: 07/FEB/2012. THERAPY DELAYED
     Route: 042
     Dates: start: 20111101
  7. ENOXAPARIN SODIUM [Concomitant]
     Route: 058
     Dates: start: 20111213
  8. RITALIN [Concomitant]
  9. FENTANYL [Concomitant]
     Dosage: DRUG: FENTANYL PLASTER
  10. MOTILIUM (SWITZERLAND) [Concomitant]
     Dates: start: 20111101

REACTIONS (5)
  - NAUSEA [None]
  - FEBRILE NEUTROPENIA [None]
  - ABDOMINAL PAIN [None]
  - PNEUMONIA [None]
  - VOMITING [None]
